FAERS Safety Report 6150426-3 (Version None)
Quarter: 2009Q2

REPORT INFORMATION
  Report Type: 
  Country: None (occurrence: None)
  Receive Date: 20090409
  Receipt Date: 20090408
  Transmission Date: 20091009
  Serious: Yes (Other)
  Sender: FDA-Public Use
  Company Number: IT-BRISTOL-MYERS SQUIBB COMPANY-14574008

PATIENT
  Age: 82 Year
  Sex: Female

DRUGS (6)
  1. APROVEL TABS 150 MG [Suspect]
     Indication: HYPERTENSION
     Route: 048
     Dates: start: 20090103, end: 20090220
  2. APROVEL TABS 150 MG [Suspect]
     Indication: RENAL FAILURE CHRONIC
     Route: 048
     Dates: start: 20090103, end: 20090220
  3. ATENOLOL [Concomitant]
     Route: 065
  4. LANSOPRAZOLE [Concomitant]
     Route: 065
  5. ALLOPURINOL [Concomitant]
     Route: 065
  6. ASPIRIN [Concomitant]
     Route: 048

REACTIONS (4)
  - ANOREXIA [None]
  - CONFUSIONAL STATE [None]
  - DEPRESSED LEVEL OF CONSCIOUSNESS [None]
  - DIARRHOEA [None]
